FAERS Safety Report 16215642 (Version 1)
Quarter: 2019Q2

REPORT INFORMATION
  Report Type: Spontaneous
  Country: US (occurrence: US)
  Receive Date: 20190418
  Receipt Date: 20190418
  Transmission Date: 20190711
  Serious: Yes (Death, Hospitalization)
  Sender: FDA-Public Use
  Company Number: None

PATIENT
  Age: 71 Year
  Sex: Female
  Weight: 263 kg

DRUGS (2)
  1. BACTRIM DS [Suspect]
     Active Substance: SULFAMETHOXAZOLE\TRIMETHOPRIM
     Indication: SKIN INFECTION
     Route: 048
     Dates: start: 20190329, end: 20190408
  2. METHOTREXATE. [Suspect]
     Active Substance: METHOTREXATE
     Indication: RHEUMATOID ARTHRITIS
     Dosage: ?          OTHER FREQUENCY:TWICE WEEKLY;?
     Route: 048
     Dates: start: 20160616, end: 20190408

REACTIONS (6)
  - Pancytopenia [None]
  - Haematemesis [None]
  - Stomatitis [None]
  - Epistaxis [None]
  - Toxicity to various agents [None]
  - Drug interaction [None]

NARRATIVE: CASE EVENT DATE: 20190329
